FAERS Safety Report 16789195 (Version 1)
Quarter: 2019Q3

REPORT INFORMATION
  Report Type: Spontaneous
  Country: GB (occurrence: GB)
  Receive Date: 20190910
  Receipt Date: 20190910
  Transmission Date: 20191005
  Serious: Yes (Hospitalization)
  Sender: FDA-Public Use
  Company Number: GB-TEVA-2019-GB-1103505

PATIENT
  Age: 59 Year
  Sex: Female

DRUGS (8)
  1. RAMIPRIL. [Concomitant]
     Active Substance: RAMIPRIL
     Indication: HYPERTENSION
     Dosage: 2.5 MG, AT NIGHT
  2. RANITIDINE. [Concomitant]
     Active Substance: RANITIDINE
     Dosage: 300 MG
  3. BISOPROLOL [Concomitant]
     Active Substance: BISOPROLOL
     Dosage: 2.5 MG, IN THE MORNING
  4. WARFARIN [Concomitant]
     Active Substance: WARFARIN
     Dosage: 15MG, (2MG DAILY, 3MG ON SUNDAYS)
  5. AMIODARONE [Suspect]
     Active Substance: AMIODARONE
     Dosage: 200 MG, IN THE MORNING
  6. LEVOTHYROXINE. [Concomitant]
     Active Substance: LEVOTHYROXINE
     Dosage: 20 MICROGRAM
  7. ACETYLSALICYLIC ACID [Concomitant]
     Active Substance: ASPIRIN
     Dosage: 75 MG, TO BE DISPERSED IN WATER
  8. BUMETANIDE. [Concomitant]
     Active Substance: BUMETANIDE
     Dosage: 6MG, MORNING AND LUNCHTIME

REACTIONS (3)
  - Alveolitis [Unknown]
  - Dyspnoea [Unknown]
  - Skin weeping [Unknown]
